FAERS Safety Report 15865418 (Version 2)
Quarter: 2019Q1

REPORT INFORMATION
  Report Type: Report from Study
  Country: BR (occurrence: BR)
  Receive Date: 20190124
  Receipt Date: 20190129
  Transmission Date: 20190417
  Serious: Yes (Death, Hospitalization)
  Sender: FDA-Public Use
  Company Number: PHHY2018BR088853

PATIENT
  Sex: Male
  Weight: 76 kg

DRUGS (3)
  1. COSENTYX [Suspect]
     Active Substance: SECUKINUMAB
     Indication: PSORIATIC ARTHROPATHY
     Dosage: 300 MG, QW DURING 5 WEEKS
     Route: 058
     Dates: start: 20180514
  2. COSENTYX [Suspect]
     Active Substance: SECUKINUMAB
     Indication: PSORIASIS
     Dosage: 300 MG, QW DURING 5 WEEKS
     Route: 058
     Dates: start: 20180611
  3. COSENTYX [Suspect]
     Active Substance: SECUKINUMAB
     Dosage: 300 MG, QMO
     Route: 058

REACTIONS (18)
  - Cardiac failure congestive [Fatal]
  - Nail disorder [Recovered/Resolved with Sequelae]
  - Acute respiratory failure [Fatal]
  - Anaemia [Fatal]
  - Pruritus [Recovered/Resolved with Sequelae]
  - Peripheral swelling [Recovered/Resolved with Sequelae]
  - Skin haemorrhage [Recovered/Resolved with Sequelae]
  - Skin fissures [Recovered/Resolved with Sequelae]
  - Acute kidney injury [Fatal]
  - Finger deformity [Recovered/Resolved with Sequelae]
  - Gait disturbance [Recovered/Resolved with Sequelae]
  - Cardiomegaly [Not Recovered/Not Resolved]
  - Skin exfoliation [Recovered/Resolved with Sequelae]
  - Foot deformity [Recovered/Resolved with Sequelae]
  - Arthralgia [Recovered/Resolved with Sequelae]
  - Multiple organ dysfunction syndrome [Fatal]
  - Acute myocardial infarction [Fatal]
  - Malaise [Recovered/Resolved with Sequelae]
